FAERS Safety Report 9995997 (Version 3)
Quarter: 2014Q2

REPORT INFORMATION
  Report Type: Spontaneous
  Country: CY (occurrence: CY)
  Receive Date: 20140311
  Receipt Date: 20140403
  Transmission Date: 20141212
  Serious: Yes (Death, Other)
  Sender: FDA-Public Use
  Company Number: CY-PFIZER INC-2014064276

PATIENT
  Age: 53 Year
  Sex: Male

DRUGS (7)
  1. INLYTA [Suspect]
     Indication: RENAL CANCER METASTATIC
     Dosage: 5 MG, 2X/DAY (EVERY 12 HOURS)
     Dates: start: 20120314, end: 20140121
  2. INLYTA [Suspect]
     Dosage: 3 MG, 2X/DAY (EVERY 12 HOURS)
     Dates: start: 20140305
  3. METFORMIN [Concomitant]
     Dosage: 850 MG, 1X2
  4. MEDROL [Concomitant]
     Dosage: 16 UNK, 1X1
  5. FAMOTIDINE [Concomitant]
     Dosage: 20 MG, 1X1
  6. ENALAPRIL MALEATE [Concomitant]
     Dosage: 240 UNK, 1X1
  7. THYROXINE [Concomitant]
     Dosage: 50 UG, 1X1

REACTIONS (3)
  - Cardiac arrest [Fatal]
  - Pancreatitis [Recovered/Resolved]
  - Amylase increased [Recovered/Resolved]
